FAERS Safety Report 24628559 (Version 2)
Quarter: 2024Q4

REPORT INFORMATION
  Report Type: Spontaneous
  Country: US (occurrence: US)
  Receive Date: 20241117
  Receipt Date: 20241203
  Transmission Date: 20250114
  Serious: No
  Sender: BAUSCH AND LOMB
  Company Number: US-BAUSCHBL-2024BNL037031

PATIENT
  Age: 86 Year
  Sex: Female
  Weight: 63.04 kg

DRUGS (1)
  1. XIIDRA [Suspect]
     Active Substance: LIFITEGRAST
     Indication: Sjogren^s syndrome
     Route: 047
     Dates: start: 202406, end: 202406

REACTIONS (5)
  - Eye pain [Unknown]
  - Photophobia [Unknown]
  - Lacrimation increased [Unknown]
  - Inability to afford medication [Unknown]
  - Therapy interrupted [Unknown]

NARRATIVE: CASE EVENT DATE: 20240601
